FAERS Safety Report 9044888 (Version 1)
Quarter: 2013Q1

REPORT INFORMATION
  Report Type: Report from Study
  Country: JP (occurrence: JP)
  Receive Date: 20130130
  Receipt Date: 20130130
  Transmission Date: 20140127
  Serious: Yes (Other)
  Sender: FDA-Public Use
  Company Number: JP-GLAXOSMITHKLINE-B0858760A

PATIENT
  Age: 49 None
  Sex: Male

DRUGS (16)
  1. HEPSERA [Suspect]
     Indication: HEPATIC CIRRHOSIS
     Dosage: 10MG PER DAY
     Route: 048
     Dates: start: 20030212, end: 20030305
  2. HEPSERA [Suspect]
     Indication: HEPATIC CIRRHOSIS
     Dosage: 10MG PER DAY
     Route: 048
     Dates: start: 20030306, end: 20030326
  3. ZEFIX [Suspect]
     Indication: HEPATIC CIRRHOSIS
     Route: 048
     Dates: start: 20000228, end: 20020226
  4. ZEFIX [Suspect]
     Indication: HEPATIC CIRRHOSIS
     Route: 048
     Dates: start: 20020227, end: 20020906
  5. ZEFIX [Suspect]
     Indication: HEPATIC CIRRHOSIS
     Route: 048
     Dates: start: 20020907, end: 20030326
  6. LASIX [Concomitant]
     Route: 048
  7. MYSLEE [Concomitant]
     Route: 048
  8. SOLDACTONE [Concomitant]
     Route: 042
  9. RESTAMIN [Concomitant]
     Route: 048
  10. POLARAMINE [Concomitant]
     Route: 048
  11. URSO [Concomitant]
     Route: 048
  12. TAKEPRON [Concomitant]
     Route: 048
  13. ZADITEN [Concomitant]
     Route: 048
  14. LOXONIN [Concomitant]
     Route: 048
  15. SHAKUYAKU-KANZO-TO [Concomitant]
     Route: 048
  16. UNKNOWN DRUG [Concomitant]
     Route: 065

REACTIONS (4)
  - Renal impairment [Recovering/Resolving]
  - Epistaxis [Recovering/Resolving]
  - Musculoskeletal pain [Recovering/Resolving]
  - Nasal dryness [Recovering/Resolving]
